FAERS Safety Report 10921815 (Version 1)
Quarter: 2015Q1

REPORT INFORMATION
  Report Type: Spontaneous
  Country: US (occurrence: None)
  Receive Date: 20150128
  Receipt Date: 20150128
  Transmission Date: 20150721
  Serious: No
  Sender: FDA-Public Use
  Company Number: 2014TUS013954

PATIENT
  Sex: Male

DRUGS (7)
  1. DETROL LA [Concomitant]
     Active Substance: TOLTERODINE TARTRATE
  2. CARDURA [Concomitant]
     Active Substance: DOXAZOSIN MESYLATE
  3. BRINTELLIX [Suspect]
     Active Substance: VORTIOXETINE HYDROBROMIDE
     Indication: MAJOR DEPRESSION
     Route: 048
     Dates: start: 20141125, end: 20141209
  4. LOSARTAN [Concomitant]
     Active Substance: LOSARTAN
  5. NEXIUM [Concomitant]
     Active Substance: ESOMEPRAZOLE MAGNESIUM
  6. NORTRIPTYLINE [Concomitant]
     Active Substance: NORTRIPTYLINE
  7. METAXALONE. [Concomitant]
     Active Substance: METAXALONE

REACTIONS (2)
  - Insomnia [None]
  - Abdominal discomfort [None]

NARRATIVE: CASE EVENT DATE: 201412
